FAERS Safety Report 6414282-8 (Version None)
Quarter: 2009Q4

REPORT INFORMATION
  Report Type: 
  Country: None (occurrence: None)
  Receive Date: 20091026
  Receipt Date: 20091019
  Transmission Date: 20100525
  Serious: Yes (Hospitalization)
  Sender: FDA-Public Use
  Company Number: DE-BRISTOL-MYERS SQUIBB COMPANY-14827497

PATIENT
  Age: 54 Year
  Sex: Female
  Weight: 43 kg

DRUGS (4)
  1. CETUXIMAB [Suspect]
     Indication: NON-SMALL CELL LUNG CANCER
     Dosage: INITIAL INF:28JUL09 RECENT INF:13OCT09(12TH) TEMP DISCONT ON 19OCT09
     Route: 042
     Dates: start: 20090728
  2. CISPLATIN [Suspect]
     Indication: NON-SMALL CELL LUNG CANCER
     Dosage: INITIAL INF:28JUL09 RECENT INF:29SEP09(4TH) TEMP DISCONT ON 19OCT09
     Route: 042
     Dates: start: 20090728
  3. CILENGITIDE [Suspect]
     Indication: NON-SMALL CELL LUNG CANCER
     Dosage: INITIAL INF:28JUL09 RECENT INF:16OCT09 (24TH) TEMP DISCONT ON 19OCT09
     Route: 042
     Dates: start: 20090728
  4. VINORELBINE [Suspect]
     Indication: NON-SMALL CELL LUNG CANCER
     Dosage: INITIAL INF:28JUL09 RECENT INF:06OCT09 TEMP DISCONT ON 19OCT09
     Route: 042
     Dates: start: 20090728

REACTIONS (1)
  - DEEP VEIN THROMBOSIS [None]
